FAERS Safety Report 20047900 (Version 1)
Quarter: 2021Q4

REPORT INFORMATION
  Report Type: Spontaneous
  Country: CZ (occurrence: CZ)
  Receive Date: 20211109
  Receipt Date: 20211109
  Transmission Date: 20220303
  Serious: Yes (Hospitalization, Other)
  Sender: FDA-Public Use
  Company Number: None

PATIENT
  Age: 63 Year
  Sex: Female

DRUGS (7)
  1. ARIPIPRAZOLE [Suspect]
     Active Substance: ARIPIPRAZOLE
     Indication: Multimorbidity
     Dosage: 15 MG, QD
     Route: 048
  2. QUETIAPINE FUMARATE [Suspect]
     Active Substance: QUETIAPINE FUMARATE
     Indication: Multimorbidity
     Dosage: QUETIAPINE PROLONG 400 MG
  3. ESCITALOPRAM [Suspect]
     Active Substance: ESCITALOPRAM OXALATE
     Indication: Multimorbidity
     Dosage: 10 MG MILLIGRAM(S)
     Route: 065
  4. PREGABALIN [Suspect]
     Active Substance: PREGABALIN
     Indication: Psychotic disorder
     Dosage: 150 MG / DAY
     Route: 065
  5. OLANZAPINE [Suspect]
     Active Substance: OLANZAPINE
     Indication: Delusion
     Dosage: 20 MILLIGRAM
     Route: 065
  6. AGOMELATINE [Suspect]
     Active Substance: AGOMELATINE
     Indication: Affective disorder
     Dosage: DOSES 25-50 MG
  7. PREGABALIN [Concomitant]
     Active Substance: PREGABALIN
     Indication: Prophylaxis
     Route: 048

REACTIONS (22)
  - Depression [Recovering/Resolving]
  - Akathisia [Recovered/Resolved]
  - Schizoaffective disorder [Unknown]
  - Accelerated hypertension [Recovered/Resolved]
  - Weight increased [Recovering/Resolving]
  - Therapeutic product effect incomplete [Unknown]
  - Psychotic disorder [Recovering/Resolving]
  - Central obesity [Recovering/Resolving]
  - Behaviour disorder [Recovered/Resolved]
  - Sedation [Unknown]
  - Sleep deficit [Recovered/Resolved]
  - Irritability [Recovered/Resolved]
  - Hallucination, auditory [Recovered/Resolved]
  - Type 2 diabetes mellitus [Recovering/Resolving]
  - Drug ineffective [Unknown]
  - Psychiatric decompensation [Recovered/Resolved]
  - Asthenia [Recovered/Resolved]
  - Euphoric mood [Recovered/Resolved]
  - Delusion [Recovered/Resolved]
  - Dysphoria [Recovered/Resolved]
  - Somnolence [Recovered/Resolved]
  - Off label use [Unknown]
